FAERS Safety Report 8831389 (Version 3)
Quarter: 2014Q1

REPORT INFORMATION
  Report Type: Spontaneous
  Country: US (occurrence: US)
  Receive Date: 20121009
  Receipt Date: 20140314
  Transmission Date: 20141002
  Serious: Yes (Hospitalization)
  Sender: FDA-Public Use
  Company Number: US-BAYER-2012-103914

PATIENT
  Age: 29 Year
  Sex: Female
  Weight: 49.89 kg

DRUGS (7)
  1. YAZ [Suspect]
     Indication: PREMENSTRUAL DYSPHORIC DISORDER
     Dosage: UNK
     Dates: start: 20080101, end: 201112
  2. CELEXA [Concomitant]
  3. HYDROCODONE/ACETAMINOPHEN [Concomitant]
     Route: 048
  4. DOXYCYCLINE [Concomitant]
     Dosage: 100 MG, UNK
     Route: 048
  5. METRONIDAZOLE [Concomitant]
     Dosage: 250 MG, UNK
     Route: 048
  6. DIAZEPAM [Concomitant]
     Route: 048
  7. OXYCODONE/APAP [Concomitant]

REACTIONS (9)
  - Cholecystectomy [None]
  - Cholecystitis chronic [None]
  - Pain [None]
  - Emotional distress [None]
  - Injury [None]
  - Anhedonia [None]
  - Anxiety [None]
  - General physical health deterioration [None]
  - Pain [None]
